FAERS Safety Report 10645460 (Version 2)
Quarter: 2014Q4

REPORT INFORMATION
  Report Type: Spontaneous
  Country: VN (occurrence: VN)
  Receive Date: 20141211
  Receipt Date: 20141217
  Transmission Date: 20150529
  Serious: Yes (Hospitalization)
  Sender: FDA-Public Use
  Company Number: VN-009507513-1412VNM001225

PATIENT
  Sex: Female

DRUGS (4)
  1. FOSAMAX PLUS D [Suspect]
     Active Substance: ALENDRONATE SODIUM\CHOLECALCIFEROL
     Dosage: STRENGTH REPORTED AS 2800, ONE TABLET WEEKLY
     Route: 048
  2. ASPIRIN. [Concomitant]
     Active Substance: ASPIRIN
     Dosage: UNKNOWN
  3. FOSAMAX PLUS D [Suspect]
     Active Substance: ALENDRONATE SODIUM\CHOLECALCIFEROL
     Dosage: STRENGTH REPORTED AS 2800, ONE TABLET WEEKLY
     Route: 048
  4. VITAMIN D [Concomitant]
     Active Substance: CHOLECALCIFEROL
     Dosage: UNKNOWN

REACTIONS (6)
  - Nausea [Recovered/Resolved]
  - Dizziness [Recovered/Resolved]
  - Drug dose omission [Unknown]
  - Headache [Recovered/Resolved]
  - Fatigue [Recovered/Resolved]
  - Vestibular disorder [Recovered/Resolved]
